FAERS Safety Report 15074435 (Version 1)
Quarter: 2018Q2

REPORT INFORMATION
  Report Type: Spontaneous
  Country: DE (occurrence: DE)
  Receive Date: 20180627
  Receipt Date: 20180627
  Transmission Date: 20180711
  Serious: Yes (Hospitalization)
  Sender: FDA-Public Use
  Company Number: DE-TEVA-2018-DE-912335

PATIENT
  Age: 79 Year
  Sex: Female
  Weight: 49 kg

DRUGS (18)
  1. MADOPAR 125 [Concomitant]
     Dosage: 100|25 MG, 6X0.5, TABLETTEN
     Route: 048
  2. NATRIUMCHLORID [Concomitant]
     Active Substance: SODIUM CHLORIDE
     Route: 048
  3. ZOPICLON [Concomitant]
     Active Substance: ZOPICLONE
     Dosage: 3.75 MILLIGRAM DAILY;
     Route: 048
  4. HYDROCHLOROTHIAZID [Suspect]
     Active Substance: HYDROCHLOROTHIAZIDE
     Dosage: 12.5 MILLIGRAM DAILY;
     Route: 048
  5. SEROQUEL [Concomitant]
     Active Substance: QUETIAPINE FUMARATE
     Dosage: 0-0-1-2
     Route: 048
  6. NEUPRO [Concomitant]
     Active Substance: ROTIGOTINE
     Dosage: 1 MG/DAY, 1-0-0-0, PLASTER TRANSDERMAL
     Route: 062
  7. PAROXETIN [Concomitant]
     Active Substance: PAROXETINE HYDROCHLORIDE
     Dosage: 20 MILLIGRAM DAILY;
     Route: 048
  8. MONO-EMBOLEX 3000I.E. PROPHYLAXE SICHERHEITSSPRITZE [Concomitant]
     Dosage: 3000 IE, 1-0-0-0, INJECTION/INFUSION SOLUTION
     Route: 058
  9. MOVICOL [Concomitant]
     Active Substance: POLYETHYLENE GLYCOL 3350\POTASSIUM CHLORIDE\SODIUM BICARBONATE\SODIUM CHLORIDE
     Dosage: 13.125|0.35|0.18|0.05 G, 1-0-0-0, GRANULAT
     Route: 048
  10. NOVAMINSULFON [Concomitant]
     Active Substance: METAMIZOLE
     Dosage: 500 MG, 2-2-2-2, TABLETTEN
     Route: 048
  11. PANTOPRAZOL [Concomitant]
     Active Substance: PANTOPRAZOLE SODIUM
     Dosage: 40 MILLIGRAM DAILY;
     Route: 048
  12. L-THYROXIN 50 [Concomitant]
     Active Substance: LEVOTHYROXINE SODIUM
     Dosage: 50 MICROGRAM DAILY;
     Route: 048
  13. CALCIUM VERLA 600MG [Concomitant]
     Dosage: 600 MILLIGRAM DAILY;
     Route: 048
  14. MAGNESIUM VERLA [Concomitant]
     Active Substance: MAGNESIUM
     Route: 048
  15. PREGABALIN. [Concomitant]
     Active Substance: PREGABALIN
     Dosage: 150 MILLIGRAM DAILY;
     Route: 048
  16. NACOM 200MG/50MG [Concomitant]
     Dosage: 200|50 MG, 1-0-1-0
     Route: 048
  17. EXELON [Concomitant]
     Active Substance: RIVASTIGMINE TARTRATE
     Dosage: 4.6 MG /DAY, 1-0-0-0, PLASTER TRANSDERMAL
     Route: 062
  18. IBUPROFEN. [Concomitant]
     Active Substance: IBUPROFEN
     Dosage: 1800 MILLIGRAM DAILY;
     Route: 048

REACTIONS (7)
  - Drug prescribing error [Unknown]
  - Dyspnoea [Unknown]
  - Vomiting [Unknown]
  - Dehydration [Unknown]
  - Disorientation [Unknown]
  - Chest pain [Unknown]
  - General physical health deterioration [Unknown]
